FAERS Safety Report 5534573-2 (Version None)
Quarter: 2007Q4

REPORT INFORMATION
  Report Type: 
  Country: None (occurrence: None)
  Receive Date: 20071205
  Receipt Date: 20071127
  Transmission Date: 20080405
  Serious: Yes (Hospitalization, Other)
  Sender: FDA-Public Use
  Company Number: US-ELI_LILLY_AND_COMPANY-US200711000996

PATIENT
  Sex: Female
  Weight: 84.3 kg

DRUGS (12)
  1. CYMBALTA [Suspect]
     Dosage: 60 MG, DAILY (1/D)
     Dates: end: 20070101
  2. CYMBALTA [Suspect]
     Dosage: 1 D/F, UNK
     Dates: start: 20071029, end: 20071029
  3. CYMBALTA [Suspect]
     Dosage: 120 MG, EACH MORNING
     Dates: start: 20070101
  4. AMBIEN [Concomitant]
     Dosage: 1 D/F, UNK
     Dates: start: 20071029, end: 20071029
  5. IBUPROFEN [Concomitant]
     Dosage: 1 D/F, UNK
     Dates: end: 20070101
  6. IBUPROFEN [Concomitant]
     Dosage: 1 D/F, UNK
     Dates: start: 20071029, end: 20071029
  7. IBUPROFEN [Concomitant]
     Dosage: 800 MG, 2/D
  8. HYDROXYZINE [Concomitant]
     Dosage: 1 D/F, UNK
     Dates: start: 20071029, end: 20071029
  9. ALCOHOL [Concomitant]
  10. MS CONTIN [Concomitant]
     Dosage: 60 MG, 3/D
  11. OXYCODONE HCL [Concomitant]
     Indication: BREAKTHROUGH PAIN
     Dosage: 5 MG, AS NEEDED
  12. OXYCODONE HCL [Concomitant]
     Dosage: 5 MG, EVERY 6 HRS

REACTIONS (8)
  - ASTHMA [None]
  - DEPRESSION [None]
  - GAIT DISTURBANCE [None]
  - INTENTIONAL OVERDOSE [None]
  - PAIN [None]
  - SUICIDE ATTEMPT [None]
  - TACHYCARDIA [None]
  - TREMOR [None]
